FAERS Safety Report 5956223-3 (Version None)
Quarter: 2008Q4

REPORT INFORMATION
  Report Type: 
  Country: None (occurrence: None)
  Receive Date: 20081118
  Receipt Date: 20081113
  Transmission Date: 20090506
  Serious: Yes (Other)
  Sender: FDA-Public Use
  Company Number: US-BIOGENIDEC-2008BI017656

PATIENT
  Age: 39 Year
  Sex: Female

DRUGS (2)
  1. AVONEX [Suspect]
     Indication: MULTIPLE SCLEROSIS
     Route: 030
     Dates: start: 20000205
  2. AVONEX [Suspect]
     Route: 030
     Dates: start: 20030219

REACTIONS (4)
  - DEPRESSION [None]
  - MIGRAINE [None]
  - OVERDOSE [None]
  - SUICIDAL IDEATION [None]
